FAERS Safety Report 20047849 (Version 1)
Quarter: 2021Q4

REPORT INFORMATION
  Report Type: Spontaneous
  Country: CN (occurrence: CN)
  Receive Date: 20211109
  Receipt Date: 20211109
  Transmission Date: 20220303
  Serious: Yes (Hospitalization)
  Sender: FDA-Public Use
  Company Number: CN-Merck Healthcare KGaA-9276240

PATIENT
  Age: 56 Year
  Sex: Male
  Weight: 66 kg

DRUGS (10)
  1. ERBITUX [Suspect]
     Active Substance: CETUXIMAB
     Indication: Adenocarcinoma of colon
     Dosage: 800 MG, DAILY
     Route: 041
     Dates: start: 20210919, end: 20210919
  2. IRINOTECAN HYDROCHLORIDE [Suspect]
     Active Substance: IRINOTECAN HYDROCHLORIDE
     Indication: Adenocarcinoma of colon
     Dosage: .3 G, DAILY
     Route: 041
     Dates: start: 20210919, end: 20210919
  3. LEVOLEUCOVORIN CALCIUM [Suspect]
     Active Substance: LEVOLEUCOVORIN CALCIUM
     Indication: Adenocarcinoma of colon
     Dosage: .7 G, DAILY
     Route: 041
     Dates: start: 20210919, end: 20210919
  4. FLUOROURACIL [Suspect]
     Active Substance: FLUOROURACIL
     Indication: Adenocarcinoma of colon
     Dosage: 2.125 G, DAILY
     Route: 041
     Dates: start: 20210919, end: 20210920
  5. FLUOROURACIL [Suspect]
     Active Substance: FLUOROURACIL
     Dosage: 2.125 G, DAILY
     Route: 041
     Dates: start: 20210919, end: 20210920
  6. FLUOROURACIL [Suspect]
     Active Substance: FLUOROURACIL
     Indication: Adenocarcinoma of colon
     Dosage: 0.7 G, DAILY
     Route: 041
     Dates: start: 20210919, end: 20210919
  7. FLUOROURACIL [Suspect]
     Active Substance: FLUOROURACIL
     Dosage: 0.7 G, DAILY
     Route: 041
     Dates: start: 20210919, end: 20210919
  8. DEXTROSE [Concomitant]
     Active Substance: DEXTROSE
     Indication: Product used for unknown indication
     Dosage: 70 ML, UNK
     Dates: start: 20210919
  9. SODIUM CHLORIDE [Concomitant]
     Active Substance: SODIUM CHLORIDE
     Indication: Product used for unknown indication
     Dosage: 250 ML, UNK
     Dates: start: 20210919
  10. SODIUM CHLORIDE [Concomitant]
     Active Substance: SODIUM CHLORIDE
     Dosage: 500 ML, UNKNOWN

REACTIONS (1)
  - Granulocytopenia [Recovering/Resolving]

NARRATIVE: CASE EVENT DATE: 20211007
